FAERS Safety Report 9310164 (Version 1)
Quarter: 2013Q2

REPORT INFORMATION
  Report Type: Spontaneous
  Country: US (occurrence: US)
  Receive Date: 20130527
  Receipt Date: 20130527
  Transmission Date: 20140414
  Serious: No
  Sender: FDA-Public Use
  Company Number: US-B.I. PHARMACEUTICALS,INC./RIDGEFIELD-2013-BI-14424BP

PATIENT
  Sex: Female

DRUGS (1)
  1. TRADJENTA [Suspect]

REACTIONS (5)
  - Malaise [Unknown]
  - Nausea [Unknown]
  - Kidney infection [Unknown]
  - Blood urine present [Unknown]
  - Vomiting [Unknown]
